FAERS Safety Report 9392927 (Version 7)
Quarter: 2015Q3

REPORT INFORMATION
  Report Type: Spontaneous
  Country: US (occurrence: US)
  Receive Date: 20130710
  Receipt Date: 20150713
  Transmission Date: 20151125
  Serious: No
  Sender: FDA-Public Use
  Company Number: US-PFIZER INC-2013198371

PATIENT
  Age: 48 Year
  Sex: Male

DRUGS (3)
  1. BOSULIF [Suspect]
     Active Substance: BOSUTINIB MONOHYDRATE
     Indication: CHRONIC MYELOID LEUKAEMIA
     Dosage: 500 MG, 1X/DAY
     Dates: start: 201307
  2. BOSULIF [Suspect]
     Active Substance: BOSUTINIB MONOHYDRATE
     Dosage: UNK
  3. BOSULIF [Suspect]
     Active Substance: BOSUTINIB MONOHYDRATE
     Dosage: 500 MG, 1X/DAY

REACTIONS (8)
  - Rash [Recovered/Resolved]
  - Swelling face [Unknown]
  - Abdominal discomfort [Unknown]
  - Hot flush [Unknown]
  - Pain in extremity [Unknown]
  - Lip swelling [Unknown]
  - Abdominal pain upper [Unknown]
  - Diarrhoea [Unknown]
